FAERS Safety Report 6195436-5 (Version None)
Quarter: 2009Q2

REPORT INFORMATION
  Report Type: 
  Country: None (occurrence: None)
  Receive Date: 20090515
  Receipt Date: 20090507
  Transmission Date: 20091009
  Serious: Yes (Other)
  Sender: FDA-Public Use
  Company Number: 09US001274

PATIENT
  Age: 39 Year
  Sex: Female
  Weight: 52.2 kg

DRUGS (4)
  1. NICOTINE [Suspect]
     Indication: SMOKING CESSATION THERAPY
     Dosage: 4 MG, 10 PIECES DAILY, ORAL
     Route: 048
     Dates: start: 20030101, end: 20090504
  2. NICOTINE [Suspect]
     Indication: SMOKING CESSATION THERAPY
     Dosage: 2 MG, 10 PIECES DAILY, ORAL
     Route: 048
     Dates: start: 20030101, end: 20090504
  3. POTASSIUM (POTASSIUM GLUCONATE) [Concomitant]
  4. VITAMIN D [Concomitant]

REACTIONS (12)
  - BLOOD ARSENIC INCREASED [None]
  - DECREASED ACTIVITY [None]
  - DENTAL CARIES [None]
  - HYPOAESTHESIA ORAL [None]
  - INCORRECT DRUG ADMINISTRATION DURATION [None]
  - INTENTIONAL DRUG MISUSE [None]
  - LYMPHADENOPATHY [None]
  - PSYCHOMOTOR HYPERACTIVITY [None]
  - RENAL TUBULAR DISORDER [None]
  - SKIN PAPILLOMA [None]
  - THYROID DISORDER [None]
  - VISUAL ACUITY REDUCED [None]
